FAERS Safety Report 13003302 (Version 1)
Quarter: 2016Q4

REPORT INFORMATION
  Report Type: Other
  Country: None (occurrence: US)
  Receive Date: 20161206
  Receipt Date: 20161206
  Transmission Date: 20170207
  Serious: Yes (Other)
  Sender: FDA-Public Use
  Company Number: US-AKORN-44444

PATIENT

DRUGS (1)
  1. TIMOLOL MALEATE. [Suspect]
     Active Substance: TIMOLOL MALEATE

REACTIONS (11)
  - Application site dermatitis [None]
  - Skin maceration [None]
  - Macule [None]
  - Off label use [None]
  - Heterochromia iridis [None]
  - Upper respiratory tract infection bacterial [None]
  - Pupils unequal [None]
  - Eye infection [None]
  - Skin irritation [None]
  - Ulcer [None]
  - Bronchospasm [None]
